FAERS Safety Report 18158101 (Version 2)
Quarter: 2020Q3

REPORT INFORMATION
  Report Type: Report from Study
  Country: US (occurrence: US)
  Receive Date: 20200817
  Receipt Date: 20200921
  Transmission Date: 20201103
  Serious: Yes (Hospitalization)
  Sender: FDA-Public Use
  Company Number: US-EISAI MEDICAL RESEARCH-EC-2019-065208

PATIENT
  Age: 59 Year
  Sex: Female
  Weight: 148 kg

DRUGS (13)
  1. LENVIMA [Suspect]
     Active Substance: LENVATINIB
     Route: 048
     Dates: start: 20200128, end: 2020
  2. LENVIMA [Suspect]
     Active Substance: LENVATINIB
     Route: 048
     Dates: start: 2020, end: 2020
  3. LENVIMA [Suspect]
     Active Substance: LENVATINIB
     Route: 048
     Dates: start: 2020
  4. LETROZOLE. [Concomitant]
     Active Substance: LETROZOLE
  5. XYZAL [Concomitant]
     Active Substance: LEVOCETIRIZINE DIHYDROCHLORIDE
  6. LENVIMA [Suspect]
     Active Substance: LENVATINIB
     Indication: RENAL CANCER
     Route: 048
     Dates: start: 20191108, end: 202001
  7. AMOXICILLIN. [Concomitant]
     Active Substance: AMOXICILLIN
  8. FERROUS SULFATE. [Concomitant]
     Active Substance: FERROUS SULFATE
     Dosage: 324 (65) MG
  9. TYLENOL [Concomitant]
     Active Substance: ACETAMINOPHEN
  10. BENADRYL [Concomitant]
     Active Substance: DIPHENHYDRAMINE HYDROCHLORIDE
  11. NORVASC [Concomitant]
     Active Substance: AMLODIPINE BESYLATE
  12. LISINOPRIL. [Concomitant]
     Active Substance: LISINOPRIL
  13. AFINITOR [Concomitant]
     Active Substance: EVEROLIMUS

REACTIONS (15)
  - Heart rate increased [Unknown]
  - Staphylococcal infection [Unknown]
  - Taste disorder [Unknown]
  - Nausea [Unknown]
  - Hypertension [Recovering/Resolving]
  - Tooth infection [Unknown]
  - Decreased appetite [Unknown]
  - Pneumonia [Unknown]
  - Headache [Unknown]
  - Stomatitis [Unknown]
  - Peripheral swelling [Unknown]
  - Dyspnoea [Unknown]
  - Pain [Unknown]
  - Diarrhoea [Unknown]
  - Rash [Unknown]

NARRATIVE: CASE EVENT DATE: 201911
